FAERS Safety Report 15282674 (Version 1)
Quarter: 2018Q3

REPORT INFORMATION
  Report Type: Spontaneous
  Country: IN (occurrence: IN)
  Receive Date: 20180816
  Receipt Date: 20180816
  Transmission Date: 20181010
  Serious: Yes (Hospitalization, Other)
  Sender: FDA-Public Use
  Company Number: IN-UNICHEM PHARMACEUTICALS (USA) INC-UCM201808-000191

PATIENT
  Age: 60 Year
  Sex: Female

DRUGS (9)
  1. CITICOLINE [Suspect]
     Active Substance: CITICOLINE
     Indication: MEMORY IMPAIRMENT
  2. OXCARBAZEPINE. [Concomitant]
     Active Substance: OXCARBAZEPINE
  3. OLMESARTAN [Concomitant]
     Active Substance: OLMESARTAN
  4. RISPERIDONE. [Suspect]
     Active Substance: RISPERIDONE
     Dates: start: 2002
  5. DONEPEZIL. [Suspect]
     Active Substance: DONEPEZIL
     Indication: MEMORY IMPAIRMENT
  6. OLANZAPINE. [Concomitant]
     Active Substance: OLANZAPINE
     Indication: PSYCHOTIC DISORDER
  7. DIVALPROEX SODIUM. [Concomitant]
     Active Substance: DIVALPROEX SODIUM
  8. PIRACETAM [Suspect]
     Active Substance: PIRACETAM
     Indication: MEMORY IMPAIRMENT
  9. CLOBAZAM [Concomitant]
     Active Substance: CLOBAZAM

REACTIONS (2)
  - Neuroleptic malignant syndrome [Recovering/Resolving]
  - Drug interaction [Recovering/Resolving]
